FAERS Safety Report 13052030 (Version 3)
Quarter: 2017Q1

REPORT INFORMATION
  Report Type: Report from Study
  Country: US (occurrence: US)
  Receive Date: 20161221
  Receipt Date: 20170118
  Transmission Date: 20170428
  Serious: No
  Sender: FDA-Public Use
  Company Number: US-GILEAD-2016-0250008

PATIENT
  Age: 64 Year
  Sex: Female
  Weight: 52.15 kg

DRUGS (16)
  1. SOFOSBUVIR W/VELPATASVIR [Suspect]
     Active Substance: SOFOSBUVIR\VELPATASVIR
     Dosage: 1 DF, QD
     Route: 048
     Dates: start: 20161206
  2. FUROSEMIDE. [Concomitant]
     Active Substance: FUROSEMIDE
  3. COLACE [Concomitant]
     Active Substance: DOCUSATE SODIUM
  4. WARFARIN [Concomitant]
     Active Substance: WARFARIN
  5. COMPAZINE                          /00013302/ [Concomitant]
     Active Substance: PROCHLORPERAZINE EDISYLATE
     Dosage: UNK
     Dates: start: 20161027
  6. OXYCODONE [Concomitant]
     Active Substance: OXYCODONE
  7. XANAX [Concomitant]
     Active Substance: ALPRAZOLAM
  8. MS CONTIN [Concomitant]
     Active Substance: MORPHINE SULFATE
  9. SOFOSBUVIR W/VELPATASVIR [Suspect]
     Active Substance: SOFOSBUVIR\VELPATASVIR
     Indication: CHRONIC HEPATITIS C
     Dosage: 2 DF, QD
     Route: 048
  10. CENTRUM SILVER                     /02363801/ [Concomitant]
     Active Substance: MINERALS\VITAMINS
  11. FAMOTIDINE. [Concomitant]
     Active Substance: FAMOTIDINE
     Dosage: UNK
     Dates: start: 20150126
  12. LISINOPRIL. [Concomitant]
     Active Substance: LISINOPRIL
  13. PANTOPRAZOLE [Concomitant]
     Active Substance: PANTOPRAZOLE SODIUM
     Dosage: UNK
     Dates: start: 20131230
  14. TYLENOL [Concomitant]
     Active Substance: ACETAMINOPHEN
  15. FLONASE                            /00908302/ [Concomitant]
     Active Substance: MOMETASONE FUROATE
     Dosage: UNK
     Dates: start: 20010126
  16. PHAZYME                            /00164001/ [Concomitant]

REACTIONS (1)
  - Overdose [Recovered/Resolved]
